FAERS Safety Report 13408256 (Version 1)
Quarter: 2017Q2

REPORT INFORMATION
  Report Type: Spontaneous
  Country: US (occurrence: US)
  Receive Date: 20170405
  Receipt Date: 20170405
  Transmission Date: 20170830
  Serious: Yes (Life-Threatening)
  Sender: FDA-Public Use
  Company Number: None

PATIENT
  Age: 48 Year
  Sex: Female

DRUGS (6)
  1. ESTRADIOL. [Concomitant]
     Active Substance: ESTRADIOL
  2. VOLTAREN [Concomitant]
     Active Substance: DICLOFENAC SODIUM
  3. VISTARIL [Concomitant]
     Active Substance: HYDROXYZINE PAMOATE
  4. MIRTAZEPINE [Concomitant]
     Active Substance: MIRTAZAPINE
  5. OMNITROPE [Suspect]
     Active Substance: SOMATROPIN
  6. VAGIFEM [Concomitant]
     Active Substance: ESTRADIOL

REACTIONS (1)
  - Breast cancer [None]

NARRATIVE: CASE EVENT DATE: 20170405
